FAERS Safety Report 18343199 (Version 1)
Quarter: 2020Q4

REPORT INFORMATION
  Report Type: Spontaneous
  Country: CA (occurrence: CA)
  Receive Date: 20201005
  Receipt Date: 20201005
  Transmission Date: 20210113
  Serious: Yes (Other)
  Sender: FDA-Public Use
  Company Number: CA-TEVA-2020-CA-1834128

PATIENT
  Sex: Female

DRUGS (3)
  1. IBRANCE [Concomitant]
     Active Substance: PALBOCICLIB
     Indication: VULVAL CANCER METASTATIC
     Dosage: 125 MILLIGRAM DAILY;
     Route: 048
  2. ANASTROZOLE. [Suspect]
     Active Substance: ANASTROZOLE
     Indication: VULVAL CANCER METASTATIC
     Route: 048
  3. FASLODEX [Concomitant]
     Active Substance: FULVESTRANT
     Indication: VULVAL CANCER METASTATIC
     Dosage: 500 MILLIGRAM DAILY;
     Route: 030

REACTIONS (1)
  - Malignant neoplasm progression [Unknown]
